FAERS Safety Report 7990764-2 (Version None)
Quarter: 2011Q4

REPORT INFORMATION
  Report Type: 
  Country: None (occurrence: None)
  Receive Date: 20111219
  Receipt Date: 20111219
  Transmission Date: 20120403
  Serious: Yes (Hospitalization)
  Sender: FDA-Public Use
  Company Number: None

PATIENT
  Sex: Female

DRUGS (3)
  1. OXCARBAZEPINE [Suspect]
     Indication: DEPRESSION
     Dosage: 150 MG -1 TABLET-
     Route: 048
     Dates: start: 20111107, end: 20111215
  2. CYMBALTA [Concomitant]
     Route: 048
  3. ALPRAZOLAM [Concomitant]
     Route: 048

REACTIONS (2)
  - MENTAL DISORDER [None]
  - MENTAL IMPAIRMENT [None]
